FAERS Safety Report 23271428 (Version 2)
Quarter: 2023Q4

REPORT INFORMATION
  Report Type: Spontaneous
  Country: US (occurrence: US)
  Receive Date: 20231207
  Receipt Date: 20231221
  Transmission Date: 20240110
  Serious: Yes (Other)
  Sender: FDA-Public Use
  Company Number: US-LUPIN PHARMACEUTICALS INC.-2023-10965

PATIENT

DRUGS (11)
  1. FLUOXETINE [Interacting]
     Active Substance: FLUOXETINE HYDROCHLORIDE
     Indication: Schizophrenia
     Dosage: 60 MG, QD 40 MG IN THE MORNING AND 20 MG IN THE EVENING
     Route: 065
  2. FLUOXETINE [Interacting]
     Active Substance: FLUOXETINE HYDROCHLORIDE
     Indication: Schizophrenia
     Dosage: 40 MG, QD
     Route: 065
  3. LORAZEPAM [Suspect]
     Active Substance: LORAZEPAM
     Indication: Malignant catatonia
     Dosage: UNK
     Route: 065
  4. ZIPRASIDONE [Interacting]
     Active Substance: ZIPRASIDONE
     Indication: Schizophrenia
     Dosage: 40 MG, BID
     Route: 065
  5. ZIPRASIDONE [Interacting]
     Active Substance: ZIPRASIDONE
     Indication: Schizophrenia
     Dosage: 20 MG, BID
     Route: 065
  6. CLOZAPINE [Interacting]
     Active Substance: CLOZAPINE
     Indication: Schizophrenia
     Dosage: 550 MG, QD 200MG IN MORNING, 100MG IN THE AFTERNOON AND 250MG IN THE EVENING
     Route: 065
  7. CLOZAPINE [Interacting]
     Active Substance: CLOZAPINE
     Indication: Schizophrenia
     Dosage: 200 MG, QD, IN MORNING, PATIENT ADMITTED HOSPITAL
     Route: 065
  8. CLOZAPINE [Interacting]
     Active Substance: CLOZAPINE
     Dosage: 300 MG, QD 100 MG IN THE MORNING AND 200 MG IN THE EVENING
     Route: 065
  9. CLOZAPINE [Interacting]
     Active Substance: CLOZAPINE
     Dosage: 150 MG, QD 100 MG IN THE MORNING AND 50 IN THE EVENING
     Route: 065
  10. CLOZAPINE [Interacting]
     Active Substance: CLOZAPINE
     Dosage: 50 MG, BID, DOSE DECREASED
     Route: 065
  11. CLOZAPINE [Interacting]
     Active Substance: CLOZAPINE
     Dosage: 100 MG, BID, DOSE INCREASED
     Route: 065

REACTIONS (2)
  - Sedation complication [Unknown]
  - Off label use [Unknown]
